FAERS Safety Report 15978678 (Version 2)
Quarter: 2019Q1

REPORT INFORMATION
  Report Type: Report from Study
  Country: MX (occurrence: MX)
  Receive Date: 20190219
  Receipt Date: 20190318
  Transmission Date: 20190418
  Serious: Yes (Hospitalization)
  Sender: FDA-Public Use
  Company Number: MX-ORION CORPORATION ORION PHARMA-ENTC2019-0032

PATIENT
  Sex: Male
  Weight: 85 kg

DRUGS (3)
  1. STALEVO [Suspect]
     Active Substance: CARBIDOPA\ENTACAPONE\LEVODOPA
     Dosage: LEVODOPA 100 MG/CARBIDOPA 25 MG/ENTACAPONE 200 MG, 1 IN THE MORNING 0.5 IN THE NIGHT
     Route: 048
  2. STALEVO [Suspect]
     Active Substance: CARBIDOPA\ENTACAPONE\LEVODOPA
     Dosage: LEVODOPA 100 MG/CARBIDOPA 25 MG/ENTACAPONE 200 MG
     Route: 048
  3. STALEVO [Suspect]
     Active Substance: CARBIDOPA\ENTACAPONE\LEVODOPA
     Indication: PARKINSON^S DISEASE
     Dosage: LEVODOPA 100 MG/CARBIDOPA 25 MG/ENTACAPONE 200 MG?IN THE MORNING, 1 IN THE AFTERNOON AND 1 AT NIGHT
     Route: 048

REACTIONS (5)
  - Cardiovascular disorder [Unknown]
  - Product prescribing error [Unknown]
  - Constipation [Recovered/Resolved]
  - Wrong technique in product usage process [Unknown]
  - Abdominal discomfort [Recovered/Resolved]

NARRATIVE: CASE EVENT DATE: 2018
